FAERS Safety Report 6551419-4 (Version None)
Quarter: 2010Q1

REPORT INFORMATION
  Report Type: 
  Country: None (occurrence: None)
  Receive Date: 20100120
  Receipt Date: 20100108
  Transmission Date: 20100710
  Serious: Yes (Other)
  Sender: FDA-Public Use
  Company Number: ALA_00405_2010

PATIENT
  Age: 23 Year
  Sex: Male

DRUGS (3)
  1. MESALAMINE [Suspect]
     Dosage: DF RECTAL, 2.4 G, TOTAL DAILY DOSE ORAL, 2.4 G, TOTAL DAILY DOSE ORAL
     Route: 048
     Dates: end: 20060401
  2. MESALAMINE [Suspect]
     Dosage: DF RECTAL, 2.4 G, TOTAL DAILY DOSE ORAL, 2.4 G, TOTAL DAILY DOSE ORAL
     Route: 048
     Dates: start: 20060201
  3. MESALAMINE [Suspect]
     Dosage: DF RECTAL, 2.4 G, TOTAL DAILY DOSE ORAL, 2.4 G, TOTAL DAILY DOSE ORAL
     Route: 048
     Dates: start: 20060501

REACTIONS (6)
  - ARTHRALGIA [None]
  - COLITIS [None]
  - DRUG INEFFECTIVE [None]
  - INFLUENZA [None]
  - PLEURAL EFFUSION [None]
  - PLEURISY [None]
